FAERS Safety Report 14248364 (Version 3)
Quarter: 2017Q4

REPORT INFORMATION
  Report Type: Spontaneous
  Country: GB (occurrence: GB)
  Receive Date: 20171204
  Receipt Date: 20171231
  Transmission Date: 20180321
  Serious: Yes (Other)
  Sender: FDA-Public Use
  Company Number: GB-TEVA-2017-GB-826967

PATIENT

DRUGS (1)
  1. SALAMOL EASI-BREATHE [Suspect]
     Active Substance: ALBUTEROL
     Route: 055
     Dates: start: 20170424

REACTIONS (4)
  - Drug ineffective [Unknown]
  - Asthma [Unknown]
  - Wrong technique in product usage process [Unknown]
  - Dyspnoea [Unknown]
